FAERS Safety Report 7653851-4 (Version None)
Quarter: 2011Q3

REPORT INFORMATION
  Report Type: 
  Country: None (occurrence: None)
  Receive Date: 20110803
  Receipt Date: 20110725
  Transmission Date: 20111222
  Serious: Yes (Hospitalization, Disabling, Other)
  Sender: FDA-Public Use
  Company Number: US-MYLANLABS-2011S1015343

PATIENT
  Age: 61 Year
  Sex: Female

DRUGS (3)
  1. VERAPAMIL HCL [Suspect]
     Indication: BLOOD PRESSURE INCREASED
     Route: 048
     Dates: start: 20110101, end: 20110601
  2. LORATADINE [Concomitant]
     Indication: MULTIPLE ALLERGIES
  3. AMLODIPINE BESYLATE [Suspect]
     Indication: BLOOD PRESSURE INCREASED
     Route: 048
     Dates: start: 20110622, end: 20110624

REACTIONS (9)
  - VISION BLURRED [None]
  - MENTAL IMPAIRMENT [None]
  - HEADACHE [None]
  - HEMIPLEGIA [None]
  - TREMOR [None]
  - FALL [None]
  - CEREBROVASCULAR ACCIDENT [None]
  - BLOOD PRESSURE INCREASED [None]
  - DYSARTHRIA [None]
